FAERS Safety Report 22247219 (Version 1)
Quarter: 2023Q2

REPORT INFORMATION
  Report Type: Spontaneous
  Country: ES (occurrence: ES)
  Receive Date: 20230424
  Receipt Date: 20230424
  Transmission Date: 20230722
  Serious: Yes (Other)
  Sender: FDA-Public Use
  Company Number: ES-STRIDES ARCOLAB LIMITED-2023SP005897

PATIENT

DRUGS (8)
  1. DOXORUBICIN [Suspect]
     Active Substance: DOXORUBICIN
     Indication: Blood disorder
     Dosage: UNK (RECEIVED AS A PART OF R-CHOP REGIMEN, WITH LAST DOSE BEFORE BOOSTER DOSE OF ELASOMERAN)
     Route: 065
  2. PREDNISOLONE [Suspect]
     Active Substance: PREDNISOLONE
     Indication: Blood disorder
     Dosage: UNK (RECEIVED AS A PART OF R-CHOP REGIMEN, WITH LAST DOSE BEFORE BOOSTER DOSE OF ELASOMERAN)
     Route: 065
  3. CYCLOPHOSPHAMIDE [Suspect]
     Active Substance: CYCLOPHOSPHAMIDE
     Indication: Blood disorder
     Dosage: UNK (RECEIVED AS A PART OF R-CHOP REGIMEN, WITH LAST DOSE BEFORE BOOSTER DOSE OF ELASOMERAN)
     Route: 065
  4. RITUXIMAB [Suspect]
     Active Substance: RITUXIMAB
     Indication: Blood disorder
     Dosage: UNK (RECEIVED AS A PART OF R-CHOP REGIMEN, WITH LAST DOSE BEFORE BOOSTER DOSE OF ELASOMERAN)
     Route: 065
  5. VINCRISTINE [Suspect]
     Active Substance: VINCRISTINE
     Indication: Blood disorder
     Dosage: UNK (RECEIVED AS A PART OF R-CHOP REGIMEN, WITH LAST DOSE BEFORE BOOSTER DOSE OF ELASOMERAN)
     Route: 065
  6. SPIKEVAX [Concomitant]
     Active Substance: ELASOMERAN
     Indication: COVID-19
     Dosage: UNK, SINGLE
     Route: 065
  7. SPIKEVAX [Concomitant]
     Active Substance: ELASOMERAN
     Dosage: UNK, SINGLE
     Route: 065
  8. SPIKEVAX [Concomitant]
     Active Substance: ELASOMERAN
     Dosage: UNK (A BOOSTER DOSE), SINGLE
     Route: 065

REACTIONS (2)
  - Immune system disorder [Unknown]
  - Off label use [Unknown]
